FAERS Safety Report 7483593-X (Version None)
Quarter: 2011Q2

REPORT INFORMATION
  Report Type: 
  Country: None (occurrence: None)
  Receive Date: 20110517
  Receipt Date: 20110512
  Transmission Date: 20111010
  Serious: No
  Sender: FDA-Public Use
  Company Number: US-PFIZER INC-2011089652

PATIENT
  Sex: Male

DRUGS (6)
  1. ZETIA [Concomitant]
     Dosage: UNK
     Dates: start: 20030916
  2. LIPITOR [Suspect]
     Indication: HYPERLIPIDAEMIA
     Dosage: 10 MG, UNK
     Route: 048
     Dates: start: 20030104
  3. METOPROLOL [Concomitant]
     Dosage: UNK
  4. LIPITOR [Suspect]
     Dosage: 20 MG, UNK
     Route: 048
  5. LIPITOR [Suspect]
     Dosage: 10 MG, UNK
     Route: 048
  6. CUMADIN [Concomitant]
     Dosage: UNK

REACTIONS (2)
  - MUSCULOSKELETAL CHEST PAIN [None]
  - CHEST PAIN [None]
